FAERS Safety Report 11975300 (Version 5)
Quarter: 2018Q4

REPORT INFORMATION
  Report Type: Spontaneous
  Country: US (occurrence: US)
  Receive Date: 20160128
  Receipt Date: 20181025
  Transmission Date: 20190204
  Serious: Yes (Hospitalization, Other)
  Sender: FDA-Public Use
  Company Number: US-DSJP-DSU-2015-133860

PATIENT

DRUGS (4)
  1. BENICAR [Suspect]
     Active Substance: OLMESARTAN MEDOXOMIL
     Dosage: 40 MG, QD
     Route: 048
     Dates: start: 2002, end: 2014
  2. LASIX [Concomitant]
     Active Substance: FUROSEMIDE
     Indication: PRODUCT USED FOR UNKNOWN INDICATION
     Dosage: 20 MG, PRN
  3. BENICAR [Suspect]
     Active Substance: OLMESARTAN MEDOXOMIL
     Indication: HYPERTENSION
     Dosage: 20 MG, QD
     Dates: start: 2002, end: 2014
  4. BENICAR HCT [Suspect]
     Active Substance: HYDROCHLOROTHIAZIDE\OLMESARTAN MEDOXOMIL
     Indication: HYPERTENSION
     Dosage: 20/12.5 MG, QD
     Dates: start: 2003, end: 2003

REACTIONS (15)
  - Anxiety [Not Recovered/Not Resolved]
  - Acute kidney injury [Unknown]
  - Colitis ulcerative [Unknown]
  - Depression [Not Recovered/Not Resolved]
  - Cholelithiasis [Unknown]
  - Gastric ulcer [Unknown]
  - Dizziness [Unknown]
  - Gastric polyps [Unknown]
  - Irritable bowel syndrome [Not Recovered/Not Resolved]
  - Sprue-like enteropathy [Unknown]
  - Hiatus hernia [Unknown]
  - Gastrooesophageal reflux disease [Not Recovered/Not Resolved]
  - Diverticulum intestinal [Unknown]
  - Phlebolith [Unknown]
  - Ureterolithiasis [Unknown]

NARRATIVE: CASE EVENT DATE: 2003
